FAERS Safety Report 16213639 (Version 1)
Quarter: 2019Q2

REPORT INFORMATION
  Report Type: Spontaneous
  Country: GB (occurrence: GB)
  Receive Date: 20190418
  Receipt Date: 20190418
  Transmission Date: 20190711
  Serious: Yes (Other)
  Sender: FDA-Public Use
  Company Number: GB-UNICHEM PHARMACEUTICALS (USA) INC-UCM201904-000129

PATIENT
  Age: 67 Year
  Sex: Female

DRUGS (9)
  1. MEXILETINE [Suspect]
     Active Substance: MEXILETINE
     Indication: CARDIAC FAILURE
  2. AMIODARONE [Concomitant]
     Active Substance: AMIODARONE
     Indication: VENTRICULAR TACHYCARDIA
  3. MEXILETINE [Suspect]
     Active Substance: MEXILETINE
  4. CARVEDILOL. [Concomitant]
     Active Substance: CARVEDILOL
     Indication: CARDIAC FAILURE
  5. VALSARTAN. [Suspect]
     Active Substance: VALSARTAN
     Indication: CARDIAC FAILURE
     Dosage: 51 MG
  6. CANDESARTAN. [Concomitant]
     Active Substance: CANDESARTAN
     Indication: CARDIAC FAILURE
  7. CANDESARTAN. [Concomitant]
     Active Substance: CANDESARTAN
  8. SPIRONOLACTONE. [Concomitant]
     Active Substance: SPIRONOLACTONE
     Indication: CARDIAC FAILURE
  9. SACUBITRIL [Suspect]
     Active Substance: SACUBITRIL
     Indication: CARDIAC FAILURE
     Dosage: 49 MG

REACTIONS (2)
  - Drug interaction [Recovered/Resolved]
  - Ventricular arrhythmia [Recovered/Resolved]
